FAERS Safety Report 17289262 (Version 2)
Quarter: 2021Q1

REPORT INFORMATION
  Report Type: Spontaneous
  Country: US (occurrence: US)
  Receive Date: 20200120
  Receipt Date: 20210119
  Transmission Date: 20210419
  Serious: Yes (Death, Hospitalization)
  Sender: FDA-Public Use
  Company Number: US-MYLANLABS-2020M1005698

PATIENT
  Age: 59 Year
  Sex: Female

DRUGS (2)
  1. TACROLIMUS. [Suspect]
     Active Substance: TACROLIMUS
     Dosage: DOSE REDUCED
     Route: 065
  2. TACROLIMUS. [Suspect]
     Active Substance: TACROLIMUS
     Indication: GRAFT VERSUS HOST DISEASE
     Dosage: UNK
     Route: 065

REACTIONS (5)
  - Post transplant lymphoproliferative disorder [Fatal]
  - Respiratory failure [Fatal]
  - Hepatic enzyme increased [Not Recovered/Not Resolved]
  - Pulmonary nodular lymphoid hyperplasia [Fatal]
  - Acute kidney injury [Not Recovered/Not Resolved]
